FAERS Safety Report 20379428 (Version 1)
Quarter: 2022Q1

REPORT INFORMATION
  Report Type: Spontaneous
  Country: US (occurrence: None)
  Receive Date: 20220126
  Receipt Date: 20220126
  Transmission Date: 20220423
  Serious: No
  Sender: FDA-Public Use
  Company Number: None

PATIENT
  Age: 72 Year
  Sex: Female
  Weight: 60.75 kg

DRUGS (1)
  1. CLIMARA PRO [Suspect]
     Active Substance: ESTRADIOL\LEVONORGESTREL
     Indication: Osteoporosis prophylaxis
     Dosage: OTHER FREQUENCY : WEEKLY;?
     Route: 062
     Dates: start: 20080808

REACTIONS (2)
  - Product adhesion issue [None]
  - Haemorrhage [None]

NARRATIVE: CASE EVENT DATE: 20211231
